FAERS Safety Report 19437011 (Version 1)
Quarter: 2021Q2

REPORT INFORMATION
  Report Type: Spontaneous
  Country: IS (occurrence: IS)
  Receive Date: 20210618
  Receipt Date: 20210618
  Transmission Date: 20210717
  Serious: Yes (Death, Other)
  Sender: FDA-Public Use
  Company Number: IS-B.I. PHARMACEUTICALS,INC./RIDGEFIELD-2021-BI-110097

PATIENT
  Sex: Male

DRUGS (7)
  1. ACETYLCYSTEINE. [Concomitant]
     Active Substance: ACETYLCYSTEINE
     Indication: PRODUCT USED FOR UNKNOWN INDICATION
     Dosage: DOSAGE AND TREATMENT START AND END DATE ARE UNKNOWN
     Route: 065
  2. CONTALGIN [Concomitant]
     Active Substance: MORPHINE SULFATE
     Indication: PRODUCT USED FOR UNKNOWN INDICATION
     Dosage: DOSAGE AND TREATMENT START AND END DATE ARE UNKNOWN
     Route: 065
  3. RELVAR [Concomitant]
     Active Substance: FLUTICASONE FUROATE\VILANTEROL TRIFENATATE
     Indication: PRODUCT USED FOR UNKNOWN INDICATION
     Dosage: DOSAGE AND TREATMENT START AND END DATE ARE UNKNOWN
     Route: 065
  4. OFEV [Suspect]
     Active Substance: NINTEDANIB
     Indication: INTERSTITIAL LUNG DISEASE
     Route: 065
     Dates: start: 202008
  5. OFEV [Suspect]
     Active Substance: NINTEDANIB
     Indication: ANGIOPATHY
  6. RITUXIMAB. [Concomitant]
     Active Substance: RITUXIMAB
     Indication: PRODUCT USED FOR UNKNOWN INDICATION
     Dosage: DOSAGE AND TREATMENT START AND END DATE ARE UNKNOWN
     Route: 065
  7. OXYGEN. [Concomitant]
     Active Substance: OXYGEN
     Indication: PRODUCT USED FOR UNKNOWN INDICATION
     Dosage: DOSAGE UNKNOWN (NOT USED AS RECOMMENDED)?TREATMENT START AND END DATE ARE UNKNOWN
     Route: 065

REACTIONS (1)
  - Myocardial infarction [Fatal]
